FAERS Safety Report 6670834-1 (Version None)
Quarter: 2010Q2

REPORT INFORMATION
  Report Type: 
  Country: None (occurrence: None)
  Receive Date: 20100407
  Receipt Date: 20100326
  Transmission Date: 20101027
  Serious: Yes (Hospitalization, Other)
  Sender: FDA-Public Use
  Company Number: FR-BAYER-201020625GPV

PATIENT
  Age: 72 Year
  Sex: Female

DRUGS (6)
  1. GLUCOR [Suspect]
     Indication: DIABETES MELLITUS
     Dosage: TOTAL DAILY DOSE: 300 MG  UNIT DOSE: 100 MG
     Route: 048
     Dates: end: 20100222
  2. METFORMIN HCL [Interacting]
     Indication: DIABETES MELLITUS
     Route: 048
     Dates: end: 20100222
  3. GLIBENCLAMIDE [Interacting]
     Indication: DIABETES MELLITUS
     Route: 048
     Dates: end: 20100222
  4. TOBRAMYCIN [Concomitant]
     Indication: DEVICE RELATED INFECTION
  5. MERONEM [Concomitant]
     Indication: DEVICE RELATED INFECTION
  6. SULFAMIDE [Concomitant]

REACTIONS (4)
  - CONVULSION [None]
  - HYPOCALCAEMIA [None]
  - HYPOGLYCAEMIA [None]
  - HYPOMAGNESAEMIA [None]
